FAERS Safety Report 8560035-4 (Version None)
Quarter: 2012Q3

REPORT INFORMATION
  Report Type: 
  Country: None (occurrence: None)
  Receive Date: 20120723
  Receipt Date: 20120531
  Transmission Date: 20120928
  Serious: Yes (Life-Threatening)
  Sender: FDA-Public Use
  Company Number: BR-20120025

PATIENT
  Age: 61 Year
  Sex: Male

DRUGS (4)
  1. HEPARIN [Concomitant]
  2. XYLOCAINE (LIDOCAINE)(LIDOCAINE) [Concomitant]
  3. HEXABRIX [Suspect]
     Indication: CATHETERISATION CARDIAC
     Dosage: (1 IN 1 D)
  4. MONOCORDIL (ISOSORBIDE MONONITRATE)(ISOSORBIDE MONONITRATE) [Concomitant]

REACTIONS (3)
  - ERYTHEMA [None]
  - ANAPHYLACTIC SHOCK [None]
  - HYPERTENSION [None]
